FAERS Safety Report 17184402 (Version 4)
Quarter: 2020Q4

REPORT INFORMATION
  Report Type: Spontaneous
  Country: US (occurrence: US)
  Receive Date: 20191220
  Receipt Date: 20201218
  Transmission Date: 20210113
  Serious: No
  Sender: FDA-Public Use
  Company Number: US-PFIZER INC-2019546725

PATIENT
  Age: 67 Year
  Sex: Female
  Weight: 113 kg

DRUGS (1)
  1. IBRANCE [Suspect]
     Active Substance: PALBOCICLIB
     Indication: BREAST CANCER METASTATIC
     Dosage: 125 MG, CYCLIC (ONE FOR 21 DAYS AND THEN 7 DAYS OFF)
     Dates: start: 20191214

REACTIONS (4)
  - Fatigue [Not Recovered/Not Resolved]
  - Skin odour abnormal [Recovered/Resolved]
  - Epistaxis [Not Recovered/Not Resolved]
  - Feeling abnormal [Not Recovered/Not Resolved]

NARRATIVE: CASE EVENT DATE: 201912
